FAERS Safety Report 9244747 (Version 1)
Quarter: 2013Q2

REPORT INFORMATION
  Report Type: Spontaneous
  Country: US (occurrence: US)
  Receive Date: 20130422
  Receipt Date: 20130422
  Transmission Date: 20140414
  Serious: Yes (Other)
  Sender: FDA-Public Use
  Company Number: US-BAYER-2013-050116

PATIENT
  Age: 55 Year
  Sex: Female

DRUGS (1)
  1. AVELOX [Suspect]
     Indication: DIARRHOEA
     Dosage: 400 MG, QD
     Route: 048
     Dates: start: 20130417, end: 20130417

REACTIONS (5)
  - Syncope [Recovering/Resolving]
  - Palmar erythema [Recovering/Resolving]
  - Generalised erythema [Recovering/Resolving]
  - Pruritus generalised [Recovering/Resolving]
  - Off label use [None]
